FAERS Safety Report 5405026-7 (Version None)
Quarter: 2007Q3

REPORT INFORMATION
  Report Type: 
  Country: None (occurrence: None)
  Receive Date: 20070803
  Receipt Date: 20070801
  Transmission Date: 20080115
  Serious: Yes (Hospitalization, Other)
  Sender: FDA-Public Use
  Company Number: US-JNJFOC-20070705400

PATIENT
  Age: 50 Year
  Sex: Female
  Weight: 90.72 kg

DRUGS (12)
  1. TOPAMAX [Suspect]
     Indication: NEUROPATHY PERIPHERAL
     Route: 048
  2. TOPAMAX [Suspect]
     Indication: BIPOLAR DISORDER
     Dosage: SAMPLES FROM PHYSICIAN
     Route: 048
  3. TOPAMAX [Suspect]
     Indication: MIGRAINE PROPHYLAXIS
     Route: 048
  4. NEURONTIN [Concomitant]
     Indication: DRUG USE FOR UNKNOWN INDICATION
     Route: 048
  5. SOMA [Concomitant]
     Indication: DRUG USE FOR UNKNOWN INDICATION
     Route: 048
  6. LIPITOR [Concomitant]
     Indication: HYPERLIPIDAEMIA
     Route: 048
  7. XANAX [Concomitant]
     Indication: PANIC DISORDER
     Route: 048
  8. ACCUPRIL [Concomitant]
     Indication: HYPERTENSION
     Route: 048
  9. MORPHINE [Concomitant]
     Indication: NEUROPATHY PERIPHERAL
     Route: 048
  10. ZOLOFT [Concomitant]
     Indication: BIPOLAR DISORDER
     Route: 048
  11. SYNTHROID [Concomitant]
     Indication: HYPOTHYROIDISM
     Route: 048
  12. KLOR-CON [Concomitant]
     Indication: BLOOD POTASSIUM DECREASED

REACTIONS (5)
  - DRUG WITHDRAWAL CONVULSIONS [None]
  - FALL [None]
  - JOINT INJURY [None]
  - LOSS OF CONSCIOUSNESS [None]
  - SPEECH DISORDER [None]
